FAERS Safety Report 24365230 (Version 1)
Quarter: 2024Q3

REPORT INFORMATION
  Report Type: Spontaneous
  Country: US (occurrence: US)
  Receive Date: 20240926
  Receipt Date: 20240926
  Transmission Date: 20241016
  Serious: No
  Sender: PADAGIS
  Company Number: US-PADAGIS-2024PAD01529

PATIENT

DRUGS (2)
  1. ESTRADIOL VAGINAL [Suspect]
     Active Substance: ESTRADIOL
     Indication: Hypertonic bladder
     Dosage: UNK
     Route: 065
     Dates: start: 20240917
  2. ESTRADIOL VAGINAL [Suspect]
     Active Substance: ESTRADIOL
     Indication: Blood oestrogen decreased

REACTIONS (3)
  - Vaginal haemorrhage [Recovered/Resolved]
  - Product use in unapproved indication [Unknown]
  - Product container seal issue [Unknown]

NARRATIVE: CASE EVENT DATE: 20240918
